FAERS Safety Report 6408317-6 (Version None)
Quarter: 2009Q4

REPORT INFORMATION
  Report Type: 
  Country: None (occurrence: None)
  Receive Date: 20091019
  Receipt Date: 20091007
  Transmission Date: 20100525
  Serious: Yes (Hospitalization)
  Sender: FDA-Public Use
  Company Number: 2009AL006483

PATIENT
  Age: 81 Year
  Sex: Male

DRUGS (4)
  1. DIGOXIN [Suspect]
     Indication: ATRIAL FIBRILLATION
     Dosage: .25 MG , PO
     Route: 048
  2. AMIODARONE [Concomitant]
  3. WARFARIN SODIUM [Concomitant]
  4. FUROSEMIDE [Concomitant]

REACTIONS (20)
  - ATELECTASIS [None]
  - ATRIOVENTRICULAR BLOCK SECOND DEGREE [None]
  - BLOOD ALBUMIN DECREASED [None]
  - BLOOD BICARBONATE INCREASED [None]
  - BLOOD CREATININE INCREASED [None]
  - BLOOD PRESSURE DIASTOLIC DECREASED [None]
  - BLOOD UREA INCREASED [None]
  - BODY TEMPERATURE DECREASED [None]
  - CACHEXIA [None]
  - CARDIOACTIVE DRUG LEVEL INCREASED [None]
  - CREPITATIONS [None]
  - DECREASED APPETITE [None]
  - ELECTROCARDIOGRAM ST SEGMENT DEPRESSION [None]
  - FATIGUE [None]
  - HAEMATOCRIT DECREASED [None]
  - INTERNATIONAL NORMALISED RATIO INCREASED [None]
  - MALAISE [None]
  - PROTHROMBIN TIME PROLONGED [None]
  - THERAPEUTIC AGENT TOXICITY [None]
  - WEIGHT DECREASED [None]
